FAERS Safety Report 5245267-5 (Version None)
Quarter: 2007Q1

REPORT INFORMATION
  Report Type: 
  Country: None (occurrence: None)
  Receive Date: 20070223
  Receipt Date: 20070214
  Transmission Date: 20070707
  Serious: Yes (Death)
  Sender: FDA-Public Use
  Company Number: US-GLAXOSMITHKLINE-A0569562A

PATIENT
  Age: 22 Year
  Sex: Female
  Weight: 53.6 kg

DRUGS (1)
  1. PAROXETINE HCL [Suspect]
     Indication: ANXIETY DISORDER
     Dosage: 10MG PER DAY
     Route: 048
     Dates: start: 20030929

REACTIONS (11)
  - COLLAPSE OF LUNG [None]
  - COMPLETED SUICIDE [None]
  - DISABILITY [None]
  - DISSOCIATION [None]
  - ENDOMETRIOSIS [None]
  - HORMONE LEVEL ABNORMAL [None]
  - INJURY ASPHYXIATION [None]
  - INSOMNIA [None]
  - PERFORMANCE STATUS DECREASED [None]
  - PULMONARY CONGESTION [None]
  - TOXICOLOGIC TEST ABNORMAL [None]
